FAERS Safety Report 4567862-9 (Version None)
Quarter: 2005Q1

REPORT INFORMATION
  Report Type: 
  Country: None (occurrence: None)
  Receive Date: 20050202
  Receipt Date: 20041116
  Transmission Date: 20050727
  Serious: No
  Sender: FDA-Public Use
  Company Number: US-GLAXOSMITHKLINE-A0534126A

PATIENT

DRUGS (1)
  1. AVANDAMET [Suspect]
     Route: 048
     Dates: start: 20041114

REACTIONS (1)
  - PERIPHERAL COLDNESS [None]
